FAERS Safety Report 20139830 (Version 1)
Quarter: 2021Q4

REPORT INFORMATION
  Report Type: Spontaneous
  Country: US (occurrence: None)
  Receive Date: 20211201
  Receipt Date: 20211201
  Transmission Date: 20220303
  Serious: Yes (Hospitalization)
  Sender: FDA-Public Use
  Company Number: None

PATIENT
  Age: 59 Year
  Sex: Female
  Weight: 8.16 kg

DRUGS (2)
  1. IMDEVIMAB [Suspect]
     Active Substance: IMDEVIMAB
     Indication: COVID-19
     Dosage: FREQUENCY : ONCE;?
     Route: 058
     Dates: start: 20211124, end: 20211124
  2. CASIRIVIMAB [Suspect]
     Active Substance: CASIRIVIMAB
     Dosage: X 1 DOSE
     Route: 058
     Dates: start: 20211124, end: 20211124

REACTIONS (5)
  - Pyrexia [None]
  - Tachycardia [None]
  - Hypotension [None]
  - COVID-19 [None]
  - Condition aggravated [None]

NARRATIVE: CASE EVENT DATE: 20211124
